FAERS Safety Report 5352873-6 (Version None)
Quarter: 2007Q2

REPORT INFORMATION
  Report Type: 
  Country: None (occurrence: None)
  Receive Date: 20070611
  Receipt Date: 20070601
  Transmission Date: 20071010
  Serious: Yes (Death, Hospitalization, Other)
  Sender: FDA-Public Use
  Company Number: US-ELI_LILLY_AND_COMPANY-US_020988011

PATIENT
  Age: 62 Year
  Sex: Male

DRUGS (7)
  1. ZYPREXA [Suspect]
     Indication: DEPRESSION
     Dosage: 750 MG, OTHER
     Route: 048
  2. LITHIUM CARBONATE [Concomitant]
     Dosage: 600 MG, 2/D
     Route: 048
  3. TERAZOSIN HCL [Concomitant]
     Dosage: UNK, UNKNOWN
  4. RABEPRAZOLE SODIUM [Concomitant]
     Dosage: UNK, UNKNOWN
  5. METHOCARBAMOL [Concomitant]
     Dosage: UNK, UNKNOWN
  6. THIAMINE [Concomitant]
     Dosage: UNK, UNKNOWN
  7. IBUPROFEN [Concomitant]
     Dosage: UNK, UNKNOWN

REACTIONS (30)
  - ATRIAL FIBRILLATION [None]
  - CARDIAC ARREST [None]
  - CARDIAC FAILURE CONGESTIVE [None]
  - CEREBRAL ATROPHY [None]
  - CHOREOATHETOSIS [None]
  - COMA [None]
  - CONFUSIONAL STATE [None]
  - DELIRIUM [None]
  - DYSARTHRIA [None]
  - GAIT DISTURBANCE [None]
  - GRIMACING [None]
  - HAEMORRHAGE SUBCUTANEOUS [None]
  - HYPOXIA [None]
  - LETHARGY [None]
  - LEUKOCYTOSIS [None]
  - MECHANICAL VENTILATION [None]
  - METABOLIC ACIDOSIS [None]
  - OVERDOSE [None]
  - PNEUMONIA [None]
  - PRESCRIBED OVERDOSE [None]
  - RESTLESSNESS [None]
  - RHABDOMYOLYSIS [None]
  - SEPSIS [None]
  - SKIN INFECTION [None]
  - SOMNOLENCE [None]
  - STAPHYLOCOCCAL INFECTION [None]
  - STATUS EPILEPTICUS [None]
  - SUICIDE ATTEMPT [None]
  - THINKING ABNORMAL [None]
  - VENTRICULAR TACHYCARDIA [None]
